FAERS Safety Report 7803937-6 (Version None)
Quarter: 2011Q4

REPORT INFORMATION
  Report Type: 
  Country: None (occurrence: None)
  Receive Date: 20111010
  Receipt Date: 20111003
  Transmission Date: 20120403
  Serious: Yes (Other)
  Sender: FDA-Public Use
  Company Number: RU-PFIZER INC-2011236016

PATIENT
  Sex: Female

DRUGS (3)
  1. XALATAN [Suspect]
     Indication: OCULAR HYPERTENSION
  2. XALATAN [Suspect]
     Indication: OPEN ANGLE GLAUCOMA
     Dosage: ONCE DAILY IN THE EVENING
     Route: 047
  3. TIMOLOL [Concomitant]
     Route: 047

REACTIONS (1)
  - HALLUCINATION [None]
